FAERS Safety Report 24247751 (Version 1)
Quarter: 2024Q3

REPORT INFORMATION
  Report Type: Spontaneous
  Country: HR (occurrence: HR)
  Receive Date: 20240826
  Receipt Date: 20240826
  Transmission Date: 20241016
  Serious: Yes (Hospitalization)
  Sender: ROCHE
  Company Number: HR-ROCHE-1090725

PATIENT
  Age: 31 Year
  Sex: Female

DRUGS (7)
  1. MYCOPHENOLATE MOFETIL [Suspect]
     Active Substance: MYCOPHENOLATE MOFETIL
     Indication: Prophylaxis against transplant rejection
     Route: 065
  2. PREDNISONE [Suspect]
     Active Substance: PREDNISONE
     Indication: Prophylaxis against transplant rejection
     Route: 065
  3. TACROLIMUS [Suspect]
     Active Substance: TACROLIMUS
     Indication: Prophylaxis against transplant rejection
     Route: 065
  4. THYMOCYTE IMMUNE GLOBULIN NOS [Suspect]
     Active Substance: THYMOCYTE IMMUNE GLOBULIN NOS
     Indication: Transplant rejection
     Route: 065
  5. GANCICLOVIR [Concomitant]
     Active Substance: GANCICLOVIR
  6. CEFTRIAXONE [Concomitant]
     Active Substance: CEFTRIAXONE\CEFTRIAXONE SODIUM
  7. FILGRASTIM [Concomitant]
     Active Substance: FILGRASTIM

REACTIONS (17)
  - Cytomegalovirus viraemia [Recovered/Resolved]
  - Neutropenia [Recovered/Resolved]
  - Leukopenia [Recovered/Resolved]
  - Disseminated aspergillosis [Recovered/Resolved]
  - Kidney transplant rejection [Recovered/Resolved]
  - Off label use [Unknown]
  - Skin lesion [Unknown]
  - Bronchopulmonary aspergillosis [Recovering/Resolving]
  - Abdominal discomfort [Recovered/Resolved]
  - Cystitis haemorrhagic [Unknown]
  - Systemic mycosis [Recovered/Resolved]
  - Lung infiltration [Recovering/Resolving]
  - Complications of transplanted kidney [Unknown]
  - Pyrexia [Recovered/Resolved]
  - Thyroiditis [Recovered/Resolved]
  - Gastrointestinal disorder [Unknown]
  - Gastroenteritis [Unknown]
